FAERS Safety Report 8775384 (Version 1)
Quarter: 2012Q4

REPORT INFORMATION
  Report Type: 
  Country: MK (occurrence: MK)
  Receive Date: 20120910
  Receipt Date: 20120910
  Transmission Date: 20130627
  Serious: Yes (Life-Threatening)
  Sender: FDA-Public Use
  Company Number: MK-ASTRAZENECA-2012SE69993

PATIENT
  Age: 5 Year
  Sex: Male

DRUGS (2)
  1. PROPOFOL [Suspect]
     Indication: GENERAL ANAESTHESIA
     Route: 042
  2. FENTANYL [Concomitant]
     Indication: GENERAL ANAESTHESIA

REACTIONS (3)
  - Sepsis [Unknown]
  - Endotoxaemia [Unknown]
  - Haemorrhagic fever [Unknown]
